FAERS Safety Report 21047589 (Version 2)
Quarter: 2022Q3

REPORT INFORMATION
  Report Type: Spontaneous
  Country: FR (occurrence: FR)
  Receive Date: 20220706
  Receipt Date: 20220809
  Transmission Date: 20221026
  Serious: Yes (Other)
  Sender: FDA-Public Use
  Company Number: FR-GSKCCFEMEA-Case-01526354_AE-59772

PATIENT

DRUGS (3)
  1. LAMICTAL [Suspect]
     Active Substance: LAMOTRIGINE
     Indication: Product used for unknown indication
     Dosage: 300 MG USALLY BUT AT ONE DAY 400 MG ACCIDENTALLY TOOK
  2. LAMICTAL [Suspect]
     Active Substance: LAMOTRIGINE
     Dosage: 600 MG
  3. LAMICTAL [Suspect]
     Active Substance: LAMOTRIGINE
     Dosage: 200 MG

REACTIONS (12)
  - Cauda equina syndrome [Unknown]
  - Pain [Unknown]
  - Rash macular [Unknown]
  - Haematoma [Unknown]
  - Poor peripheral circulation [Unknown]
  - Somnolence [Unknown]
  - Contusion [Unknown]
  - Dry skin [Unknown]
  - Fatigue [Unknown]
  - Malaise [Unknown]
  - Multiple allergies [Unknown]
  - Accidental overdose [Unknown]

NARRATIVE: CASE EVENT DATE: 20190101
